FAERS Safety Report 5334124-1 (Version None)
Quarter: 2007Q2

REPORT INFORMATION
  Report Type: 
  Country: None (occurrence: None)
  Receive Date: 20070308
  Receipt Date: 20061222
  Transmission Date: 20071010
  Serious: No
  Sender: FDA-Public Use
  Company Number: 2005-BP-18534BP

PATIENT
  Age: 63 Year
  Sex: Female

DRUGS (2)
  1. SPIRIVA [Suspect]
     Indication: CHRONIC OBSTRUCTIVE PULMONARY DISEASE
     Dosage: 18 MCG (18 MCG), IH
     Route: 055
     Dates: start: 20041001
  2. SPIRIVA [Suspect]

REACTIONS (2)
  - AGEUSIA [None]
  - DRUG INEFFECTIVE [None]
